FAERS Safety Report 26086926 (Version 1)
Quarter: 2025Q4

REPORT INFORMATION
  Report Type: Spontaneous
  Country: US (occurrence: None)
  Receive Date: 20251124
  Receipt Date: 20251124
  Transmission Date: 20260118
  Serious: Yes (Other)
  Sender: FDA-CTU
  Company Number: None

PATIENT

DRUGS (2)
  1. BICILLIN [Suspect]
     Active Substance: PENICILLIN G BENZATHINE
     Indication: Exposure to communicable disease
  2. BICILLIN [Suspect]
     Active Substance: PENICILLIN G BENZATHINE
     Indication: Syphilis

REACTIONS (6)
  - Swelling [None]
  - Erythema [None]
  - Pain [None]
  - Pain in extremity [None]
  - Back pain [None]
  - Injection related reaction [None]

NARRATIVE: CASE EVENT DATE: 20251124
